FAERS Safety Report 15468391 (Version 1)
Quarter: 2018Q4

REPORT INFORMATION
  Report Type: Spontaneous
  Country: US (occurrence: US)
  Receive Date: 20181001
  Receipt Date: 20181001
  Transmission Date: 20190204
  Serious: No
  Sender: FDA-Public Use
  Company Number: None

PATIENT
  Age: 83 Year
  Sex: Female
  Weight: 77.56 kg

DRUGS (1)
  1. IBANDRONATE 3 MG/3 ML SYRINGE, [Suspect]
     Active Substance: IBANDRONATE SODIUM
     Indication: OSTEOPOROSIS
     Dosage: INJECT 3 MG VIA INTRAVENOUSLY OVER 15-30 SECONDS EVERY 3 MONTHS AS DIRECTED?          ?
     Route: 042
     Dates: start: 201504

REACTIONS (1)
  - Rash [None]
